FAERS Safety Report 9462357 (Version 1)
Quarter: 2013Q3

REPORT INFORMATION
  Report Type: Spontaneous
  Country: AT (occurrence: AT)
  Receive Date: 20130816
  Receipt Date: 20130816
  Transmission Date: 20140515
  Serious: Yes (Hospitalization)
  Sender: FDA-Public Use
  Company Number: AT-ROCHE-1261934

PATIENT
  Sex: Female

DRUGS (12)
  1. TRASTUZUMAB [Suspect]
     Indication: INVASIVE DUCTAL BREAST CARCINOMA
     Route: 065
     Dates: start: 201005, end: 201010
  2. TRASTUZUMAB [Suspect]
     Indication: METASTASES TO LIVER
  3. TRASTUZUMAB [Suspect]
     Indication: METASTASES TO BONE
  4. CAPECITABINE [Suspect]
     Indication: INVASIVE DUCTAL BREAST CARCINOMA
     Route: 065
     Dates: start: 201112, end: 201206
  5. CAPECITABINE [Suspect]
     Indication: METASTASES TO LIVER
  6. CAPECITABINE [Suspect]
     Indication: METASTASES TO BONE
  7. DOCETAXEL [Suspect]
     Indication: INVASIVE DUCTAL BREAST CARCINOMA
     Route: 065
     Dates: start: 201005, end: 201010
  8. DOCETAXEL [Suspect]
     Indication: METASTASES TO LIVER
  9. DOCETAXEL [Suspect]
     Indication: METASTASES TO BONE
  10. LAPATINIB [Suspect]
     Indication: METASTASES TO BONE
     Route: 065
     Dates: start: 201112, end: 201206
  11. LAPATINIB [Suspect]
     Indication: INVASIVE DUCTAL BREAST CARCINOMA
  12. LAPATINIB [Suspect]
     Indication: METASTASES TO BONE

REACTIONS (2)
  - Mastectomy [Unknown]
  - Disease progression [Unknown]
